FAERS Safety Report 7321773-4 (Version None)
Quarter: 2011Q1

REPORT INFORMATION
  Report Type: 
  Country: None (occurrence: None)
  Receive Date: 20110228
  Receipt Date: 20110223
  Transmission Date: 20110831
  Serious: Yes (Hospitalization)
  Sender: FDA-Public Use
  Company Number: RO-ABBOTT-11P-135-0707390-00

PATIENT
  Age: 60 Year
  Sex: Female
  Weight: 50 kg

DRUGS (2)
  1. KLACID SR 500 MG TABLETS [Suspect]
     Indication: EAR INFECTION
  2. KLACID SR 500 MG TABLETS [Suspect]
     Indication: TONSILLITIS
     Route: 048
     Dates: start: 20110214, end: 20110219

REACTIONS (2)
  - GRAND MAL CONVULSION [None]
  - DIZZINESS [None]
